FAERS Safety Report 26035909 (Version 2)
Quarter: 2025Q4

REPORT INFORMATION
  Report Type: Report from Study
  Country: US (occurrence: US)
  Receive Date: 20251112
  Receipt Date: 20251119
  Transmission Date: 20260117
  Serious: Yes (Other)
  Sender: MALLINCKRODT
  Company Number: US-MALLINCKRODT-MNK202506564

PATIENT
  Age: 69 Year
  Sex: Female
  Weight: 195 kg

DRUGS (2)
  1. CORTICOTROPIN [Suspect]
     Active Substance: CORTICOTROPIN
     Indication: Iridocyclitis
     Dosage: 80 UNITS
     Route: 058
     Dates: start: 20251004
  2. SEMAGLUTIDE [Concomitant]
     Active Substance: SEMAGLUTIDE
     Dosage: UNK

REACTIONS (10)
  - Sciatic nerve injury [Unknown]
  - Confusional state [Unknown]
  - Inflammation [Unknown]
  - Temperature intolerance [Unknown]
  - Insomnia [Unknown]
  - Injection site bruising [Unknown]
  - Headache [Unknown]
  - Depressed mood [Unknown]
  - Increased appetite [Unknown]
  - Injection site discharge [Unknown]

NARRATIVE: CASE EVENT DATE: 20250101
